FAERS Safety Report 11309440 (Version 1)
Quarter: 2015Q3

REPORT INFORMATION
  Report Type: Spontaneous
  Country: IT (occurrence: IT)
  Receive Date: 20150724
  Receipt Date: 20150724
  Transmission Date: 20151125
  Serious: Yes (Hospitalization)
  Sender: FDA-Public Use
  Company Number: IT-VIVUS-2015V1000343

PATIENT
  Age: 69 Year
  Sex: Male

DRUGS (2)
  1. MICARDIS PLUS [Concomitant]
     Active Substance: HYDROCHLOROTHIAZIDE\TELMISARTAN
  2. SPEDRA [Suspect]
     Active Substance: AVANAFIL
     Indication: PRODUCT USED FOR UNKNOWN INDICATION
     Route: 065
     Dates: start: 20150712, end: 20150712

REACTIONS (1)
  - Retrograde amnesia [Recovering/Resolving]

NARRATIVE: CASE EVENT DATE: 20150712
